FAERS Safety Report 7437963-6 (Version None)
Quarter: 2011Q2

REPORT INFORMATION
  Report Type: 
  Country: None (occurrence: None)
  Receive Date: 20110421
  Receipt Date: 20110421
  Transmission Date: 20111010
  Serious: Yes (Hospitalization)
  Sender: FDA-Public Use
  Company Number: None

PATIENT
  Sex: Female
  Weight: 78.1 kg

DRUGS (2)
  1. SOLU-MEDROL [Suspect]
     Indication: RESPIRATORY DISORDER
     Dosage: 125MG ONE TIME IM
     Route: 030
     Dates: start: 20110418, end: 20110418
  2. SOLU-MEDROL [Suspect]

REACTIONS (5)
  - HYPERHIDROSIS [None]
  - OXYGEN SATURATION DECREASED [None]
  - UNRESPONSIVE TO STIMULI [None]
  - PALLOR [None]
  - HEART RATE DECREASED [None]
